FAERS Safety Report 6298928-3 (Version None)
Quarter: 2009Q3

REPORT INFORMATION
  Report Type: 
  Country: None (occurrence: None)
  Receive Date: 20090806
  Receipt Date: 20090729
  Transmission Date: 20100115
  Serious: Yes (Hospitalization)
  Sender: FDA-Public Use
  Company Number: FR-JNJFOC-20090800710

PATIENT
  Sex: Male

DRUGS (11)
  1. HALDOL [Suspect]
     Route: 048
  2. HALDOL [Suspect]
     Indication: DRUG USE FOR UNKNOWN INDICATION
     Route: 048
  3. EXELON [Concomitant]
     Indication: DEMENTIA ALZHEIMER'S TYPE
     Route: 048
  4. EQUANIL [Concomitant]
     Route: 048
  5. EQUANIL [Concomitant]
     Indication: AGITATION
     Route: 048
  6. ATHYMIL [Concomitant]
     Indication: INSOMNIA
     Route: 048
  7. IMOVANE [Concomitant]
     Indication: INSOMNIA
     Route: 048
  8. OGASTORO [Concomitant]
     Indication: HICCUPS
     Route: 048
  9. TRANSIPEG [Concomitant]
     Indication: CONSTIPATION
     Route: 048
  10. DAFALGAN [Concomitant]
     Indication: PAIN
     Dosage: UP TO 500 MG, 6 TIMES PER DAY
     Route: 048
  11. GAVISCON [Concomitant]
     Indication: HICCUPS
     Route: 065

REACTIONS (1)
  - TRANSIENT ISCHAEMIC ATTACK [None]
